FAERS Safety Report 18379620 (Version 2)
Quarter: 2020Q4

REPORT INFORMATION
  Report Type: Spontaneous
  Country: US (occurrence: US)
  Receive Date: 20201013
  Receipt Date: 20201103
  Transmission Date: 20210114
  Serious: Yes (Hospitalization)
  Sender: FDA-Public Use
  Company Number: US-TEVA-2020-US-1837486

PATIENT
  Age: 47 Year
  Sex: Female

DRUGS (3)
  1. CAPECITABINE. [Suspect]
     Active Substance: CAPECITABINE
     Indication: NEUROENDOCRINE CARCINOMA METASTATIC
     Dosage: 1500 MG/M2 DAILY; DAYS 1-14 OF A 28-DAY CYCLE
     Route: 065
     Dates: start: 201401
  2. OSELTAMIVIR [Concomitant]
     Active Substance: OSELTAMIVIR
     Indication: INFLUENZA
     Route: 065
  3. TEMOZOLOMIDE. [Suspect]
     Active Substance: TEMOZOLOMIDE
     Indication: NEUROENDOCRINE CARCINOMA METASTATIC
     Dosage: 200 MG/M2 DAILY; DAYS 10-14 OF A 28-DAY CYCLE
     Route: 065
     Dates: start: 201401, end: 201603

REACTIONS (4)
  - Pyrexia [Recovering/Resolving]
  - Acute myeloid leukaemia [Recovering/Resolving]
  - Pancytopenia [Recovering/Resolving]
  - Influenza [Recovering/Resolving]

NARRATIVE: CASE EVENT DATE: 2016
